FAERS Safety Report 5272986-7 (Version None)
Quarter: 2007Q1

REPORT INFORMATION
  Report Type: 
  Country: None (occurrence: None)
  Receive Date: 20070322
  Receipt Date: 20070312
  Transmission Date: 20070707
  Serious: Yes (Hospitalization, Other)
  Sender: FDA-Public Use
  Company Number: US-PFIZER INC-2006124651

PATIENT
  Sex: Female
  Weight: 79.8 kg

DRUGS (6)
  1. BEXTRA [Suspect]
     Indication: ARTHRITIS
     Route: 048
     Dates: start: 20020319, end: 20040617
  2. BEXTRA [Suspect]
     Route: 048
     Dates: start: 20040408, end: 20040617
  3. CELEBREX [Suspect]
     Route: 048
     Dates: start: 19990218, end: 19990418
  4. CELEBREX [Suspect]
     Route: 048
     Dates: start: 20000214, end: 20041118
  5. ZOCOR [Concomitant]
  6. MAVIK [Concomitant]

REACTIONS (2)
  - CARDIAC DISORDER [None]
  - CEREBROVASCULAR ACCIDENT [None]
